FAERS Safety Report 7104812-5 (Version None)
Quarter: 2010Q4

REPORT INFORMATION
  Report Type: 
  Country: None (occurrence: None)
  Receive Date: 20101116
  Receipt Date: 20101109
  Transmission Date: 20110411
  Serious: Yes (Hospitalization, Other)
  Sender: FDA-Public Use
  Company Number: US-SANOFI-AVENTIS-2010SA060116

PATIENT
  Age: 85 Year
  Sex: Male
  Weight: 81.4 kg

DRUGS (9)
  1. ELIGARD [Suspect]
     Indication: PROSTATE CANCER
     Dosage: EVERY SIX MONTHS
     Route: 065
     Dates: start: 20070101, end: 20070101
  2. ELIGARD [Suspect]
     Dosage: EVERY SIX MONTHS
     Route: 065
     Dates: start: 20100927, end: 20100927
  3. COREG [Concomitant]
  4. BETHANECHOL [Concomitant]
  5. MACROBID [Concomitant]
  6. PRILOSEC [Concomitant]
  7. LASIX [Concomitant]
  8. SYNTHROID [Concomitant]
  9. POTASSIUM CHLORIDE [Concomitant]

REACTIONS (12)
  - ABNORMAL BEHAVIOUR [None]
  - ASTHENIA [None]
  - DEMENTIA [None]
  - DEPRESSION [None]
  - EATING DISORDER [None]
  - EYELID DISORDER [None]
  - FUNGAL INFECTION [None]
  - HALLUCINATION [None]
  - NAUSEA [None]
  - PNEUMONIA [None]
  - THINKING ABNORMAL [None]
  - URINARY TRACT INFECTION [None]
